FAERS Safety Report 8707576 (Version 2)
Quarter: 2013Q4

REPORT INFORMATION
  Report Type: Spontaneous
  Country: US (occurrence: US)
  Receive Date: 20120805
  Receipt Date: 20131031
  Transmission Date: 20140711
  Serious: No
  Sender: FDA-Public Use
  Company Number: US-009507513-2012SP036130

PATIENT
  Age: 83 Year
  Sex: Male
  Weight: 74.83 kg

DRUGS (6)
  1. CLARITIN [Suspect]
     Indication: SNEEZING
     Dosage: 10 MG, QAM
     Route: 048
     Dates: start: 20120503, end: 20120620
  2. CLARITIN [Suspect]
     Indication: RHINORRHOEA
  3. CLARITIN [Suspect]
     Indication: EYE PRURITUS
  4. LOTREL [Concomitant]
     Indication: BLOOD PRESSURE
     Dosage: 5/40MG, UNKNOWN
  5. CRESTOR [Concomitant]
     Indication: HYPERCHOLESTEROLAEMIA
     Dosage: 20 MG, UNKNOWN
  6. CENTRUM SILVER [Concomitant]
     Indication: PRODUCT USED FOR UNKNOWN INDICATION
     Dosage: UNK, UNKNOWN

REACTIONS (1)
  - Drug ineffective [Unknown]
